FAERS Safety Report 17155604 (Version 2)
Quarter: 2020Q1

REPORT INFORMATION
  Report Type: Report from Study
  Country: None (occurrence: FR)
  Receive Date: 20191215
  Receipt Date: 20200102
  Transmission Date: 20200409
  Serious: Yes (Hospitalization)
  Sender: FDA-Public Use
  Company Number: FR-ABBVIE-19K-056-2992893-00

PATIENT
  Sex: Female

DRUGS (2)
  1. DUODOPA [Suspect]
     Active Substance: CARBIDOPA\LEVODOPA
     Route: 050
     Dates: start: 201911
  2. DUODOPA [Suspect]
     Active Substance: CARBIDOPA\LEVODOPA
     Indication: PARKINSON^S DISEASE
     Route: 050
     Dates: start: 20191021, end: 2019

REACTIONS (9)
  - Nausea [Unknown]
  - Cognitive disorder [Unknown]
  - Drug ineffective [Unknown]
  - Hypophagia [Unknown]
  - Unintentional medical device removal [Unknown]
  - Loss of personal independence in daily activities [Unknown]
  - General physical health deterioration [Unknown]
  - Hypersomnia [Unknown]
  - Fall [Unknown]

NARRATIVE: CASE EVENT DATE: 2019
